FAERS Safety Report 4573933-3 (Version None)
Quarter: 2005Q1

REPORT INFORMATION
  Report Type: 
  Country: None (occurrence: None)
  Receive Date: 20050204
  Receipt Date: 20050126
  Transmission Date: 20050727
  Serious: Yes (Hospitalization)
  Sender: FDA-Public Use
  Company Number: GXKR2005IT00508

PATIENT
  Age: 67 Year
  Sex: Male

DRUGS (1)
  1. RANITIDINE [Suspect]
     Dosage: ORAL
     Route: 048

REACTIONS (3)
  - RETINAL HAEMORRHAGE [None]
  - RETINAL VASCULAR OCCLUSION [None]
  - VISUAL ACUITY REDUCED [None]
